FAERS Safety Report 6735881-X (Version None)
Quarter: 2010Q2

REPORT INFORMATION
  Report Type: 
  Country: None (occurrence: None)
  Receive Date: 20100521
  Receipt Date: 20100513
  Transmission Date: 20101027
  Serious: Yes (Death)
  Sender: FDA-Public Use
  Company Number: A0860257A

PATIENT
  Sex: Male

DRUGS (1)
  1. SERETIDE [Suspect]

REACTIONS (1)
  - EMPHYSEMA [None]
